FAERS Safety Report 6277187-1 (Version None)
Quarter: 2009Q3

REPORT INFORMATION
  Report Type: 
  Country: None (occurrence: None)
  Receive Date: 20090722
  Receipt Date: 20090309
  Transmission Date: 20100115
  Serious: Yes (Hospitalization)
  Sender: FDA-Public Use
  Company Number: US-BRISTOL-MYERS SQUIBB COMPANY-14495345

PATIENT
  Age: 69 Year
  Sex: Female
  Weight: 74 kg

DRUGS (10)
  1. COUMADIN [Suspect]
     Indication: PULMONARY THROMBOSIS
  2. COUMADIN [Suspect]
     Indication: THROMBOSIS
  3. VICODIN [Concomitant]
  4. FIORICET [Concomitant]
  5. POTASSIUM CHLORIDE [Concomitant]
  6. TOPROL-XL [Concomitant]
  7. LASIX [Concomitant]
  8. VITAMIN B-12 [Concomitant]
  9. VITAMIN B6 [Concomitant]
  10. VITAMIN D [Concomitant]

REACTIONS (7)
  - ALOPECIA [None]
  - DIZZINESS [None]
  - DYSPNOEA [None]
  - EPISTAXIS [None]
  - GASTRIC DISORDER [None]
  - HAEMORRHAGE [None]
  - HEADACHE [None]
